FAERS Safety Report 5216027-6 (Version None)
Quarter: 2006Q4

REPORT INFORMATION
  Report Type: 
  Country: None (occurrence: None)
  Receive Date: 20061122
  Receipt Date: 20060227
  Transmission Date: 20070319
  Serious: Yes (Other)
  Sender: FDA-Public Use
  Company Number: 2006028661

PATIENT
  Sex: Male
  Weight: 99.7913 kg

DRUGS (2)
  1. LIPITOR [Suspect]
     Indication: BLOOD CHOLESTEROL INCREASED
     Dates: start: 20010101
  2. UROXATRAL [Concomitant]

REACTIONS (1)
  - ABDOMINAL PAIN UPPER [None]
